FAERS Safety Report 25087762 (Version 1)
Quarter: 2025Q1

REPORT INFORMATION
  Report Type: Spontaneous
  Country: JP (occurrence: JP)
  Receive Date: 20250318
  Receipt Date: 20250318
  Transmission Date: 20250409
  Serious: Yes (Hospitalization, Other)
  Sender: UNICHEM
  Company Number: JP-UNICHEM LABORATORIES LIMITED-UNI-2025-JP-001478

PATIENT

DRUGS (4)
  1. PRASUGREL [Suspect]
     Active Substance: PRASUGREL
     Indication: Percutaneous coronary intervention
     Route: 065
  2. PRASUGREL [Suspect]
     Active Substance: PRASUGREL
     Route: 065
  3. ASPIRIN [Concomitant]
     Active Substance: ASPIRIN
     Indication: Percutaneous coronary intervention
     Route: 065
  4. ASPIRIN [Concomitant]
     Active Substance: ASPIRIN
     Route: 065

REACTIONS (2)
  - Drug resistance [Unknown]
  - Thrombosis [Recovered/Resolved]
